FAERS Safety Report 13792741 (Version 1)
Quarter: 2017Q3

REPORT INFORMATION
  Report Type: Spontaneous
  Country: US (occurrence: US)
  Receive Date: 20170725
  Receipt Date: 20170725
  Transmission Date: 20171127
  Serious: Yes (Other)
  Sender: FDA-Public Use
  Company Number: US-ENDO PHARMACEUTICALS INC-2017-003947

PATIENT
  Age: 65 Year
  Sex: Female

DRUGS (12)
  1. DIAZEPAM. [Concomitant]
     Active Substance: DIAZEPAM
     Indication: PRODUCT USED FOR UNKNOWN INDICATION
     Dosage: 2 DF,AT BEDTIME
     Route: 065
  2. GABAPENTIN. [Concomitant]
     Active Substance: GABAPENTIN
     Indication: SLEEP DISORDER
     Dosage: UNK UNK, QHS
     Route: 065
  3. CITALOPRAM [Concomitant]
     Active Substance: CITALOPRAM HYDROBROMIDE
     Indication: PRODUCT USED FOR UNKNOWN INDICATION
     Dosage: 20 MG, OD
     Route: 065
  4. METHYLPREDNISOLONE TABLETS 4MG [Suspect]
     Active Substance: METHYLPREDNISOLONE
     Dosage: 1 DF, TID, (1 TABLET EACH BEFORE BREAKFAST, AFTER LUNCH AND AFTER DINNER)
     Route: 065
     Dates: start: 20170704, end: 20170704
  5. WELLBUTRIN XL [Concomitant]
     Active Substance: BUPROPION HYDROCHLORIDE
     Indication: PRODUCT USED FOR UNKNOWN INDICATION
     Dosage: 300 MG, OD
     Route: 065
  6. METHYLPREDNISOLONE TABLETS 4MG [Suspect]
     Active Substance: METHYLPREDNISOLONE
     Indication: PAIN
     Dosage: 2 DF, QID (2 TABLETS EACH BEFORE BREAKFAST, AFTER LUNCH, AFTER DINNER AND AT BEDTIME)
     Route: 065
     Dates: start: 20170701, end: 20170701
  7. METHYLPREDNISOLONE TABLETS 4MG [Suspect]
     Active Substance: METHYLPREDNISOLONE
     Dosage: 1 DF, QID, (1 TABLET EACH BEFORE BREAKFAST, AFTER LUNCH, AFTER DINNER AND AT BEDTIME)
     Route: 065
     Dates: start: 20170703, end: 20170703
  8. ADVIL [Concomitant]
     Active Substance: IBUPROFEN
     Indication: PAIN
     Dosage: UNK UNK, UNKNOWN
     Route: 065
  9. METHYLPREDNISOLONE TABLETS 4MG [Suspect]
     Active Substance: METHYLPREDNISOLONE
     Dosage: 5 DF, (2 TABLETS BEFORE BREAKFAST AND 1 TABLET EACH AFTER LUNCH, AFTER DINNER AND AT BEDTIME)
     Route: 065
     Dates: start: 20170702, end: 20170702
  10. METHYLPREDNISOLONE TABLETS 4MG [Suspect]
     Active Substance: METHYLPREDNISOLONE
     Dosage: 1 DF, BID, (1 TABLET BEFORE BREAKFAST AND 1 TABLET AT BEDTIME)
     Route: 065
     Dates: start: 20170705, end: 20170705
  11. TRAMADOL HCL [Concomitant]
     Active Substance: TRAMADOL HYDROCHLORIDE
     Indication: PAIN
     Dosage: UNK UNK, OD
     Route: 065
  12. METHYLPREDNISOLONE TABLETS 4MG [Suspect]
     Active Substance: METHYLPREDNISOLONE
     Dosage: 1 DF, DAILY (1 TABLET BEFORE BREAKFAST)
     Route: 065
     Dates: start: 20170706, end: 20170706

REACTIONS (4)
  - Homicidal ideation [Not Recovered/Not Resolved]
  - Agitation [Not Recovered/Not Resolved]
  - Nausea [Unknown]
  - Suicidal ideation [Not Recovered/Not Resolved]

NARRATIVE: CASE EVENT DATE: 201707
